FAERS Safety Report 17041909 (Version 1)
Quarter: 2019Q4

REPORT INFORMATION
  Report Type: Spontaneous
  Country: US (occurrence: US)
  Receive Date: 20191118
  Receipt Date: 20191118
  Transmission Date: 20200122
  Serious: Yes (Hospitalization)
  Sender: FDA-Public Use
  Company Number: NVSC2019US034861

PATIENT
  Age: 13 Year
  Sex: Female

DRUGS (2)
  1. CARBOPLATIN. [Suspect]
     Active Substance: CARBOPLATIN
     Indication: CERVIX CARCINOMA
     Dosage: UNK
     Route: 065
  2. PACLITAXEL. [Suspect]
     Active Substance: PACLITAXEL
     Indication: CERVIX CARCINOMA
     Dosage: UNK
     Route: 065

REACTIONS (10)
  - Ureteric obstruction [Recovered/Resolved]
  - Cervix carcinoma [Unknown]
  - Metastases to liver [Unknown]
  - Metastases to lung [Unknown]
  - Malignant neoplasm progression [Unknown]
  - Constipation [Recovered/Resolved]
  - Back pain [Recovered/Resolved]
  - Blood creatinine increased [Recovered/Resolved]
  - Product use in unapproved indication [Unknown]
  - Intestinal obstruction [Recovered/Resolved]
